FAERS Safety Report 24281030 (Version 1)
Quarter: 2024Q3

REPORT INFORMATION
  Report Type: Spontaneous
  Country: GB (occurrence: GB)
  Receive Date: 20240904
  Receipt Date: 20240904
  Transmission Date: 20241017
  Serious: Yes (Other)
  Sender: SANDOZ
  Company Number: GB-MHRA-TPP26309659C9823503YC1725106012637

PATIENT
  Age: 72 Year
  Sex: Female
  Weight: 78 kg

DRUGS (10)
  1. CLARITHROMYCIN [Suspect]
     Active Substance: CLARITHROMYCIN
     Indication: Ill-defined disorder
     Dosage: UNK (TAKE ONE EVERY 12 HOURS FOR 10 DAYS)
     Route: 065
     Dates: start: 20240830
  2. ANASTROZOLE [Concomitant]
     Active Substance: ANASTROZOLE
     Indication: Ill-defined disorder
     Dosage: UNK (TAKE ONE DAILY)
     Route: 065
     Dates: start: 20230228
  3. ATORVASTATIN [Concomitant]
     Active Substance: ATORVASTATIN
     Indication: Ill-defined disorder
     Dosage: UNK (TAKE ONE AT NIGHT TO LOWER CHOLESTEROL)
     Route: 065
     Dates: start: 20240201
  4. CIPROFLOXACIN [Concomitant]
     Active Substance: CIPROFLOXACIN
     Indication: Ill-defined disorder
     Dosage: UNK (TAKE ONE TABLET TWICE A DAY FOR 5 DAYS, TO TREA...)
     Route: 065
     Dates: start: 20240624, end: 20240629
  5. DIAZEPAM [Concomitant]
     Active Substance: DIAZEPAM
     Indication: Ill-defined disorder
     Dosage: UNK (HALF TABLET AS REQUIRED)
     Route: 065
     Dates: start: 20240612, end: 20240710
  6. DOXYCYCLINE [Concomitant]
     Active Substance: DOXYCYCLINE\DOXYCYCLINE HYCLATE
     Indication: Ill-defined disorder
     Dosage: UNK (TAKE 1 CAPSULE A DAY FOR 10 DAYS)
     Route: 065
     Dates: start: 20240831
  7. LATANOPROST [Concomitant]
     Active Substance: LATANOPROST
     Indication: Ill-defined disorder
     Dosage: UNK (APPLY  ONCE DAILY PREFERABLY AT NIGHT)
     Route: 065
     Dates: start: 20230123
  8. METRONIDAZOLE [Concomitant]
     Active Substance: METRONIDAZOLE
     Indication: Ill-defined disorder
     Dosage: UNK (TAKE ONE TABLET THREE TIMES DAILY FOR 5 DAYS)
     Route: 065
     Dates: start: 20240624, end: 20240629
  9. ALBUTEROL [Concomitant]
     Active Substance: ALBUTEROL
     Indication: Ill-defined disorder
     Dosage: UNK (TWO PUFFS FOUR TIMES A DAY AS REQUIRED)
     Route: 065
     Dates: start: 20080107
  10. SERETIDE [Concomitant]
     Active Substance: FLUTICASONE PROPIONATE\SALMETEROL XINAFOATE
     Indication: Ill-defined disorder
     Dosage: UNK (TAKE 2 PUFFS TWICE A DAY)
     Route: 065
     Dates: start: 20080107

REACTIONS (4)
  - Faeces discoloured [Unknown]
  - Diarrhoea [Recovered/Resolved]
  - Nausea [Recovering/Resolving]
  - Palpitations [Recovered/Resolved]
